FAERS Safety Report 7025414 (Version 6)
Quarter: 2014Q4

REPORT INFORMATION
  Report Type: Report from Study
  Country: ES (occurrence: ES)
  Receive Date: 20090617
  Receipt Date: 20141024
  Transmission Date: 20150529
  Serious: Yes (Hospitalization)
  Sender: FDA-Public Use
  Company Number: ES-PFIZER INC-2009226292

PATIENT
  Age: 67 Year
  Sex: Male
  Weight: 57 kg

DRUGS (10)
  1. PARACETAMOL [Concomitant]
     Active Substance: ACETAMINOPHEN
     Dosage: UNK
     Dates: start: 20090506
  2. HIBOR [Concomitant]
     Active Substance: BEMIPARIN SODIUM
     Indication: ANTICOAGULANT THERAPY
     Dosage: 3500 IU, DAILY
     Route: 058
     Dates: start: 20090505
  3. CAPECITABINE. [Suspect]
     Active Substance: CAPECITABINE
     Indication: METASTATIC RENAL CELL CARCINOMA
     Dosage: 650 MG/M2 (1300 MG), CYCLIC: TWICE DAILY ON DAYS 1-14
     Route: 048
     Dates: start: 20090506
  4. DIGOXINE [Concomitant]
     Active Substance: DIGOXIN
     Indication: ATRIAL FLUTTER
     Dosage: 1 DF, UNK
     Route: 048
     Dates: start: 2004
  5. PROPANOLOL [Concomitant]
     Active Substance: PROPRANOLOL HYDROCHLORIDE
     Indication: HYPERTENSION
     Dosage: 10 MG, DAILY
     Route: 048
  6. GEMCITABINE HYDROCHLORIDE. [Suspect]
     Active Substance: GEMCITABINE HYDROCHLORIDE
     Indication: METASTATIC RENAL CELL CARCINOMA
     Dosage: 1000 MG/M2, CYCLIC, ON DAYS 1 AND 8
     Route: 042
  7. ENALAPRIL MALEATE. [Concomitant]
     Active Substance: ENALAPRIL MALEATE
     Indication: HYPERTENSION
     Dosage: 20 MG, DAILY
     Route: 048
     Dates: start: 20090514
  8. SUNITINIB MALATE [Suspect]
     Active Substance: SUNITINIB MALATE
     Indication: METASTATIC RENAL CELL CARCINOMA
     Dosage: 37.5 MG , CYCLIC: DAILY FOR SIX 21-DAY CYCLES
     Route: 048
     Dates: start: 20090506
  9. FUROSEMIDE. [Concomitant]
     Active Substance: FUROSEMIDE
     Indication: HYPERTENSION
     Dosage: 40 MG, DAILY
     Route: 048
     Dates: start: 20090512
  10. IBUPROFEN. [Concomitant]
     Active Substance: IBUPROFEN
     Dosage: UNK
     Dates: start: 20090506

REACTIONS (7)
  - Diarrhoea [Recovering/Resolving]
  - Respiratory tract infection [Recovered/Resolved]
  - Mucosal inflammation [Recovered/Resolved]
  - Decreased appetite [Recovered/Resolved]
  - Asthenia [Recovered/Resolved]
  - Nausea [Unknown]
  - Thrombocytopenia [Unknown]

NARRATIVE: CASE EVENT DATE: 20090608
